FAERS Safety Report 11098093 (Version 5)
Quarter: 2016Q3

REPORT INFORMATION
  Report Type: Report from Study
  Country: FR (occurrence: FR)
  Receive Date: 20150507
  Receipt Date: 20160916
  Transmission Date: 20161109
  Serious: Yes (Death, Hospitalization)
  Sender: FDA-Public Use
  Company Number: FR-009507513-1504FRA020073

PATIENT
  Age: 72 Year
  Sex: Female
  Weight: 67 kg

DRUGS (12)
  1. CALCIPARINE [Concomitant]
     Active Substance: HEPARIN CALCIUM
     Dosage: 12500 IU/0.5 ML
  2. FIDAXOMICIN [Suspect]
     Active Substance: FIDAXOMICIN
     Dosage: 200 MG, QD
     Route: 048
     Dates: start: 20150104, end: 20150105
  3. LANTUS [Concomitant]
     Active Substance: INSULIN GLARGINE
     Indication: DIABETES MELLITUS
     Dosage: 10 IU DAILY ONCE DAILY
     Route: 058
     Dates: end: 20150105
  4. VANCOMYCIN [Concomitant]
     Active Substance: VANCOMYCIN
     Indication: CLOSTRIDIUM DIFFICILE INFECTION
     Dosage: 1 G, DAILY
     Route: 048
  5. VANCOMYCIN [Concomitant]
     Active Substance: VANCOMYCIN
     Dosage: UNK
     Route: 048
     Dates: start: 20141211, end: 20141226
  6. FUROSEMIDE. [Concomitant]
     Active Substance: FUROSEMIDE
     Route: 048
  7. DIFFU-K [Concomitant]
     Active Substance: POTASSIUM CHLORIDE
  8. FIDAXOMICIN [Suspect]
     Active Substance: FIDAXOMICIN
     Indication: CLOSTRIDIUM DIFFICILE INFECTION
     Dosage: 400 MG, DAILY
     Route: 048
     Dates: start: 20140911, end: 20140921
  9. ACETAMINOPHEN. [Concomitant]
     Active Substance: ACETAMINOPHEN
     Route: 048
  10. MIDAZOLAM [Concomitant]
     Active Substance: MIDAZOLAM\MIDAZOLAM HYDROCHLORIDE
  11. MORPHINE SULFATE. [Concomitant]
     Active Substance: MORPHINE SULFATE
     Route: 048
  12. OROZAMUDOL [Concomitant]
     Active Substance: TRAMADOL

REACTIONS (10)
  - Dysphagia [Fatal]
  - General physical health deterioration [Fatal]
  - Cardiac failure [Fatal]
  - Sepsis [Fatal]
  - Clostridium difficile infection [Not Recovered/Not Resolved]
  - Blood creatinine abnormal [Fatal]
  - Pyelonephritis acute [Fatal]
  - Acute kidney injury [Fatal]
  - Neurological decompensation [Fatal]
  - Multiple organ dysfunction syndrome [Fatal]

NARRATIVE: CASE EVENT DATE: 20141113
